FAERS Safety Report 20723252 (Version 1)
Quarter: 2022Q2

REPORT INFORMATION
  Report Type: Spontaneous
  Country: DE (occurrence: DE)
  Receive Date: 20220419
  Receipt Date: 20220419
  Transmission Date: 20220721
  Serious: Yes (Other)
  Sender: FDA-Public Use
  Company Number: DE-CADRBFARM-2022289255

PATIENT
  Age: 78 Year
  Sex: Male
  Weight: 70 kg

DRUGS (3)
  1. DICLOFENAC SODIUM [Suspect]
     Active Substance: DICLOFENAC SODIUM
     Indication: Product use in unapproved indication
     Dosage: UNK
     Route: 003
  2. DICLOFENAC SODIUM [Suspect]
     Active Substance: DICLOFENAC SODIUM
     Indication: Nail bed inflammation
     Dosage: 150 MILLIGRAM, ONCE A DAY, 2 TABLETS A DAY
     Route: 048
     Dates: start: 20220319, end: 20220328
  3. DICLOFENAC SODIUM [Suspect]
     Active Substance: DICLOFENAC SODIUM
     Dosage: 1 DOSAGE FORM, ON THE 1ST DAY 1 TABLET IN THE EVENING
     Route: 048
     Dates: end: 20220318

REACTIONS (8)
  - Haematochezia [Unknown]
  - Abdominal discomfort [Unknown]
  - Faeces hard [Unknown]
  - Gastrointestinal pain [Not Recovered/Not Resolved]
  - Abdominal pain lower [Unknown]
  - Diarrhoea [Unknown]
  - Inflammation [Unknown]
  - Abdominal distension [Unknown]

NARRATIVE: CASE EVENT DATE: 20220322
